FAERS Safety Report 9099525 (Version 7)
Quarter: 2013Q2

REPORT INFORMATION
  Report Type: Report from Study
  Country: TR (occurrence: TR)
  Receive Date: 20130214
  Receipt Date: 20130517
  Transmission Date: 20140414
  Serious: Yes (Death, Hospitalization, Other)
  Sender: FDA-Public Use
  Company Number: PHHY2012TR009276

PATIENT
  Age: 18 Year
  Sex: Male
  Weight: 50.8 kg

DRUGS (9)
  1. EXJADE [Suspect]
     Indication: HAEMOSIDEROSIS
     Dosage: 2000 MG, DAILY
     Route: 048
     Dates: start: 20100115
  2. EXJADE [Suspect]
     Dosage: 2000 MG, DAILY
     Route: 048
     Dates: start: 20100315, end: 20120131
  3. EXJADE [Suspect]
     Dosage: 2000 MG, DAILY
     Route: 048
     Dates: start: 20120214, end: 20121224
  4. EXJADE [Suspect]
     Dosage: 2000 MG, DAILY (1000 MG IN THE MORNING AND 1000 MG IN THE EVENING)
     Route: 048
  5. HYDREA [Concomitant]
     Indication: SICKLE CELL ANAEMIA
     Dosage: 1000 MG, BID
     Dates: start: 2006
  6. FOLBIOL [Concomitant]
     Indication: SICKLE CELL ANAEMIA
     Dosage: 1 DF, ONCE WEEKLY
     Route: 048
     Dates: start: 2005
  7. CEFOTAXIME [Concomitant]
     Indication: INFECTION
     Dosage: 50 MG/KG, TID
     Dates: start: 20130210, end: 20130214
  8. DEKORT [Concomitant]
     Indication: BRAIN OEDEMA
     Dosage: 0.5 MG, 4 TIMES A DAY
     Dates: start: 20130210, end: 20130214
  9. ULCURAN [Concomitant]
     Indication: GASTRITIS PROPHYLAXIS
     Dosage: 50 MG, TID
     Route: 030
     Dates: start: 20130210, end: 20130214

REACTIONS (13)
  - Death [Fatal]
  - Loss of consciousness [Recovered/Resolved]
  - Cerebrovascular accident [Recovered/Resolved]
  - Respiratory depression [Unknown]
  - Respiratory arrest [Unknown]
  - Cardiac arrest [Unknown]
  - Cerebrovascular disorder [Not Recovered/Not Resolved]
  - Hypophagia [Recovered/Resolved]
  - Cerebral infarction [Recovered/Resolved]
  - Vomiting [Recovered/Resolved]
  - Inappropriate schedule of drug administration [Unknown]
  - Proteinuria [Unknown]
  - Nausea [Recovered/Resolved]
